FAERS Safety Report 5162131-0 (Version None)
Quarter: 2006Q4

REPORT INFORMATION
  Report Type: 
  Country: None (occurrence: None)
  Receive Date: 20061121
  Receipt Date: 20061113
  Transmission Date: 20070319
  Serious: Yes (Hospitalization)
  Sender: FDA-Public Use
  Company Number: 2006-150405-NL

PATIENT
  Age: 54 Year
  Sex: Female

DRUGS (14)
  1. MIRTAZAPINE [Suspect]
     Dosage: SEE IMAGE
     Route: 048
     Dates: start: 20050518, end: 20050524
  2. MIRTAZAPINE [Suspect]
     Dosage: SEE IMAGE
     Route: 048
     Dates: start: 20050525, end: 20050529
  3. MIRTAZAPINE [Suspect]
     Dosage: SEE IMAGE
     Route: 048
     Dates: start: 20050530, end: 20050606
  4. MIRTAZAPINE [Suspect]
     Dosage: SEE IMAGE
     Route: 048
     Dates: start: 20050607, end: 20050607
  5. MIRTAZAPINE [Suspect]
     Dosage: SEE IMAGE
     Route: 048
     Dates: start: 20050608, end: 20050608
  6. MIRTAZAPINE [Suspect]
     Dosage: SEE IMAGE
     Route: 048
     Dates: start: 20050609, end: 20050609
  7. MIRTAZAPINE [Suspect]
     Dosage: SEE IMAGE
     Route: 048
     Dates: start: 20050610, end: 20050610
  8. MIRTAZAPINE [Suspect]
     Dosage: SEE IMAGE
     Route: 048
     Dates: start: 20050611, end: 20050611
  9. VENLAFAXINE HYDROCHLORIDE [Suspect]
     Dosage: SEE IMAGE
     Route: 048
     Dates: start: 20050424, end: 20050503
  10. VENLAFAXINE HYDROCHLORIDE [Suspect]
     Dosage: SEE IMAGE
     Route: 048
     Dates: start: 20050504, end: 20050507
  11. VENLAFAXINE HYDROCHLORIDE [Suspect]
     Dosage: SEE IMAGE
     Route: 048
     Dates: start: 20050508, end: 20050511
  12. VENLAFAXINE HYDROCHLORIDE [Suspect]
     Dosage: SEE IMAGE
     Route: 048
     Dates: start: 20050512, end: 20050518
  13. VENLAFAXINE HYDROCHLORIDE [Suspect]
     Dosage: SEE IMAGE
     Route: 048
     Dates: start: 20050519, end: 20050608
  14. .. [Concomitant]

REACTIONS (4)
  - ALANINE AMINOTRANSFERASE INCREASED [None]
  - ASPARTATE AMINOTRANSFERASE INCREASED [None]
  - GAMMA-GLUTAMYLTRANSFERASE INCREASED [None]
  - GLUTAMATE DEHYDROGENASE INCREASED [None]
